FAERS Safety Report 12242773 (Version 1)
Quarter: 2016Q2

REPORT INFORMATION
  Report Type: Spontaneous
  Country: US (occurrence: US)
  Receive Date: 20160406
  Receipt Date: 20160406
  Transmission Date: 20160815
  Serious: Yes (Life-Threatening, Other)
  Sender: FDA-Public Use
  Company Number: US-PFIZER INC-2016109035

PATIENT
  Age: 2 Month
  Weight: 5.2 kg

DRUGS (10)
  1. ARGATROBAN. [Suspect]
     Active Substance: ARGATROBAN
     Indication: ANTICOAGULANT THERAPY
     Dosage: 2 UG/KG/MIN
     Route: 040
  2. ARGATROBAN. [Suspect]
     Active Substance: ARGATROBAN
     Dosage: 3 UG/KG/MIN
  3. ARGATROBAN. [Suspect]
     Active Substance: ARGATROBAN
     Dosage: 20 UG/KG, (2 UG/KG/MIN)
     Route: 040
  4. SEVOFLURANE. [Concomitant]
     Active Substance: SEVOFLURANE
  5. ARGATROBAN. [Suspect]
     Active Substance: ARGATROBAN
     Dosage: 2 UG/KG/MIN
  6. FENTANYL. [Concomitant]
     Active Substance: FENTANYL
     Dosage: 10 UG/KG
  7. ARGATROBAN. [Suspect]
     Active Substance: ARGATROBAN
     Dosage: 20 UG/KG,  (2 UG/KG/MIN)
     Route: 040
  8. ARGATROBAN. [Suspect]
     Active Substance: ARGATROBAN
     Dosage: 5 UG/KG/MIN
  9. ARGATROBAN. [Suspect]
     Active Substance: ARGATROBAN
     Dosage: 2 UG/KG/MIN
  10. DESFLURANE. [Concomitant]
     Active Substance: DESFLURANE

REACTIONS (3)
  - Blood pressure decreased [Unknown]
  - Haemorrhage [Unknown]
  - Product use issue [Unknown]
